FAERS Safety Report 8856607 (Version 1)
Quarter: 2012Q4

REPORT INFORMATION
  Report Type: Spontaneous
  Country: US (occurrence: None)
  Receive Date: 20121019
  Receipt Date: 20121019
  Transmission Date: 20130627
  Serious: Yes (Disabling)
  Sender: FDA-Public Use
  Company Number: 1452866

PATIENT

DRUGS (3)
  1. EPINEPHRINE [Suspect]
     Indication: NERVE BLOCK
  2. BUPIVACAINE HYDROCHLORIDE [Suspect]
     Indication: NERVE BLOCK
  3. CLONIDINE [Suspect]
     Indication: NERVE BLOCK

REACTIONS (2)
  - Neurological symptom [None]
  - Post procedural complication [None]
